FAERS Safety Report 5498035-3 (Version None)
Quarter: 2007Q4

REPORT INFORMATION
  Report Type: 
  Country: None (occurrence: None)
  Receive Date: 20071025
  Receipt Date: 20071015
  Transmission Date: 20080405
  Serious: Yes (Hospitalization, Other)
  Sender: FDA-Public Use
  Company Number: SE-PFIZER INC-2007081116

PATIENT
  Age: 65 Year
  Sex: Male

DRUGS (3)
  1. ZOLOFT [Suspect]
     Indication: DEPRESSION
     Route: 048
  2. ZOPICLONE [Concomitant]
  3. PROPAVAN [Concomitant]

REACTIONS (3)
  - BILIARY TRACT DISORDER [None]
  - MEMORY IMPAIRMENT [None]
  - PANCREATIC NEOPLASM [None]
